FAERS Safety Report 6018626-0 (Version None)
Quarter: 2008Q4

REPORT INFORMATION
  Report Type: 
  Country: None (occurrence: None)
  Receive Date: 20081223
  Receipt Date: 20081217
  Transmission Date: 20090506
  Serious: Yes (Hospitalization)
  Sender: FDA-Public Use
  Company Number: IT-AMGEN-UK318772

PATIENT
  Sex: Female

DRUGS (7)
  1. GRANULOKINE [Suspect]
     Indication: CHEMOTHERAPY
     Route: 058
     Dates: start: 20081106, end: 20081108
  2. ADRIAMYCIN PFS [Concomitant]
     Dates: start: 20081030
  3. TAXOL [Concomitant]
     Dates: start: 20081030
  4. CHLORPHENIRAMINE MALEATE [Concomitant]
  5. KYTRIL [Concomitant]
  6. DECADRON [Concomitant]
  7. ZANTAC [Concomitant]

REACTIONS (2)
  - BACK PAIN [None]
  - CHEST PAIN [None]
